FAERS Safety Report 4566602-7 (Version None)
Quarter: 2005Q1

REPORT INFORMATION
  Report Type: 
  Country: None (occurrence: None)
  Receive Date: 20050201
  Receipt Date: 20050121
  Transmission Date: 20050727
  Serious: Yes (Hospitalization)
  Sender: FDA-Public Use
  Company Number: FR-BRISTOL-MYERS SQUIBB COMPANY-12840880

PATIENT
  Age: 11 Year
  Sex: Female

DRUGS (7)
  1. ENDOXAN [Suspect]
     Indication: GOODPASTURE'S SYNDROME
     Route: 048
     Dates: start: 20041127
  2. ATARAX [Concomitant]
     Dates: start: 20040103, end: 20040113
  3. BACTRIM [Concomitant]
     Dates: start: 20041127, end: 20041229
  4. FUNGIZONE [Concomitant]
     Dates: start: 20041127
  5. SOLU-MEDROL [Concomitant]
     Dates: start: 20041126, end: 20041130
  6. CORTANCYL [Concomitant]
  7. PENTAMIDINE [Concomitant]
     Dates: start: 20041229

REACTIONS (3)
  - ALANINE AMINOTRANSFERASE INCREASED [None]
  - ASPARTATE AMINOTRANSFERASE INCREASED [None]
  - GAMMA-GLUTAMYLTRANSFERASE INCREASED [None]
